FAERS Safety Report 7475839-9 (Version None)
Quarter: 2011Q2

REPORT INFORMATION
  Report Type: 
  Country: None (occurrence: None)
  Receive Date: 20110510
  Receipt Date: 20110510
  Transmission Date: 20111010
  Serious: Yes (Hospitalization)
  Sender: FDA-Public Use
  Company Number: None

PATIENT
  Age: 66 Year
  Sex: Male

DRUGS (15)
  1. ALLOPURINOL [Concomitant]
  2. COLACE [Concomitant]
  3. FLOWVENT [Concomitant]
  4. PRILOSEC [Concomitant]
  5. ACCOLATE [Concomitant]
  6. LANTUS [Concomitant]
  7. AZATHIOPRINE [Suspect]
     Indication: POLYMYOSITIS
     Dosage: 150MG DAILY PO
     Route: 048
  8. ATROVENT [Concomitant]
  9. PREDNISONE [Concomitant]
  10. THEOPHYLLINE [Concomitant]
  11. PROVENTIL [Concomitant]
  12. LEVOTHYROXINE SODIUM [Concomitant]
  13. METFORMIN HCL [Concomitant]
  14. VIT B12 [Concomitant]
  15. GLUCOTROL [Concomitant]

REACTIONS (1)
  - ANAEMIA [None]
